FAERS Safety Report 9426852 (Version 1)
Quarter: 2013Q3

REPORT INFORMATION
  Report Type: Spontaneous
  Country: US (occurrence: US)
  Receive Date: 20130730
  Receipt Date: 20130730
  Transmission Date: 20140515
  Serious: No
  Sender: FDA-Public Use
  Company Number: US-SANOFI-AVENTIS-2013SA019997

PATIENT
  Age: 62 Year
  Sex: Female

DRUGS (3)
  1. ZOLPIDEM TARTRATE EXTENDED RELEASE - WINTHROP [Suspect]
     Indication: SLEEP DISORDER
     Route: 048
  2. ZOLPIDEM TARTRATE EXTENDED RELEASE - WINTHROP [Suspect]
     Indication: SLEEP DISORDER
     Route: 048
     Dates: start: 20130115
  3. AMBIEN CR [Suspect]
     Route: 048

REACTIONS (3)
  - Hepatic cirrhosis [Not Recovered/Not Resolved]
  - Insomnia [Not Recovered/Not Resolved]
  - Therapy change [Not Recovered/Not Resolved]
